FAERS Safety Report 19955327 (Version 1)
Quarter: 2021Q4

REPORT INFORMATION
  Report Type: Spontaneous
  Country: US (occurrence: US)
  Receive Date: 20211014
  Receipt Date: 20211014
  Transmission Date: 20220303
  Serious: No
  Sender: FDA-Public Use
  Company Number: None

PATIENT
  Age: 22 Year
  Sex: Male
  Weight: 96.75 kg

DRUGS (3)
  1. DEXTROAMPHET SACCHARAT, AMPHET ASPARTATE, DEXTROAMPHET SULFATE AND AMP [Suspect]
     Active Substance: AMPHETAMINE ASPARTATE\AMPHETAMINE SULFATE\DEXTROAMPHETAMINE SACCHARATE\DEXTROAMPHETAMINE SULFATE
     Indication: Attention deficit hyperactivity disorder
     Dosage: ?          QUANTITY:1 TABLET(S);
     Route: 048
  2. VAPE [Concomitant]
  3. ALCOHOL [Concomitant]
     Active Substance: ALCOHOL

REACTIONS (8)
  - Product substitution issue [None]
  - Drug ineffective [None]
  - Quality of life decreased [None]
  - Nausea [None]
  - Product use complaint [None]
  - Product coating issue [None]
  - Product size issue [None]
  - Product solubility abnormal [None]

NARRATIVE: CASE EVENT DATE: 20211010
